FAERS Safety Report 5608744-0 (Version None)
Quarter: 2008Q1

REPORT INFORMATION
  Report Type: 
  Country: None (occurrence: None)
  Receive Date: 20080131
  Receipt Date: 20080122
  Transmission Date: 20080703
  Serious: Yes (Death)
  Sender: FDA-Public Use
  Company Number: GBWYE832301SEP06

PATIENT
  Sex: Male

DRUGS (2)
  1. TIGECYCLINE [Suspect]
     Indication: ACINETOBACTER INFECTION
     Dosage: UNKNOWN
     Route: 042
     Dates: start: 20060626
  2. COLISTIN SULFATE [Suspect]
     Indication: ACINETOBACTER INFECTION
     Dosage: UNKNOWN
     Dates: end: 20060624

REACTIONS (6)
  - ACINETOBACTER INFECTION [None]
  - CONCOMITANT DISEASE PROGRESSION [None]
  - CONDITION AGGRAVATED [None]
  - DISEASE PROGRESSION [None]
  - HEAD INJURY [None]
  - MULTI-ORGAN FAILURE [None]
